FAERS Safety Report 5035075-2 (Version None)
Quarter: 2006Q2

REPORT INFORMATION
  Report Type: 
  Country: None (occurrence: None)
  Receive Date: 20060519
  Receipt Date: 20060322
  Transmission Date: 20061013
  Serious: No
  Sender: FDA-Public Use
  Company Number: TPA2005A01607

PATIENT
  Age: 31 Year
  Sex: Female
  Weight: 99.7913 kg

DRUGS (8)
  1. ROZEREM [Suspect]
     Indication: INITIAL INSOMNIA
     Dosage: 8 MG, QHS, PER ORAL
     Route: 048
     Dates: start: 20051228
  2. LITHOBID [Concomitant]
  3. LAMICTAL [Concomitant]
  4. BUPROPION HCL [Concomitant]
  5. BUSPIONE (BUSPIRONE) [Concomitant]
  6. LEVOTHYROXINE SODIUM [Concomitant]
  7. MINOCYCLINE HCL [Concomitant]
  8. ALPRAZOLAM [Concomitant]

REACTIONS (1)
  - NO ADVERSE EFFECT [None]
